FAERS Safety Report 19433376 (Version 1)
Quarter: 2021Q2

REPORT INFORMATION
  Report Type: Spontaneous
  Country: NZ (occurrence: NZ)
  Receive Date: 20210617
  Receipt Date: 20210617
  Transmission Date: 20210717
  Serious: Yes (Hospitalization)
  Sender: FDA-Public Use
  Company Number: NZ-PFIZER INC-2021680426

PATIENT
  Age: 65 Year
  Sex: Female

DRUGS (1)
  1. LORLATINIB [Suspect]
     Active Substance: LORLATINIB
     Dosage: 100 MG, 1X/DAY
     Route: 048
     Dates: start: 20210304

REACTIONS (1)
  - Malignant pleural effusion [Recovered/Resolved]

NARRATIVE: CASE EVENT DATE: 20210524
